FAERS Safety Report 5785908-7 (Version None)
Quarter: 2008Q2

REPORT INFORMATION
  Report Type: 
  Country: None (occurrence: None)
  Receive Date: 20080624
  Receipt Date: 20071105
  Transmission Date: 20081010
  Serious: No
  Sender: FDA-Public Use
  Company Number: US-ASTRAZENECA-2007UW13780

PATIENT
  Age: 88 Year
  Sex: Male

DRUGS (6)
  1. PULMICORT [Suspect]
     Indication: CHRONIC OBSTRUCTIVE PULMONARY DISEASE
     Route: 055
  2. PULMICORT [Suspect]
     Indication: EMPHYSEMA
     Route: 055
  3. PULMICORT FLEXHALER [Suspect]
     Indication: CHRONIC OBSTRUCTIVE PULMONARY DISEASE
     Route: 055
  4. PULMICORT FLEXHALER [Suspect]
     Indication: EMPHYSEMA
     Route: 055
  5. COUMADIN [Concomitant]
  6. FORADIL [Concomitant]

REACTIONS (3)
  - COUGH [None]
  - DRY MOUTH [None]
  - RHINORRHOEA [None]
